FAERS Safety Report 17787805 (Version 1)
Quarter: 2020Q2

REPORT INFORMATION
  Report Type: Spontaneous
  Country: US (occurrence: US)
  Receive Date: 20200514
  Receipt Date: 20200514
  Transmission Date: 20200714
  Serious: No
  Sender: FDA-Public Use
  Company Number: US-PERRIGO-20US002736

PATIENT
  Age: 65 Year
  Sex: Male
  Weight: 106.58 kg

DRUGS (2)
  1. TRIAMCINOLONE ACETONIDE. [Suspect]
     Active Substance: TRIAMCINOLONE ACETONIDE
     Indication: ECZEMA
     Dosage: 1 APPLICATION, 1 TO 2 TIMES DAILY
     Route: 061
     Dates: start: 20191101
  2. CLONAZEPAM. [Concomitant]
     Active Substance: CLONAZEPAM
     Indication: ANXIETY
     Dosage: UNK
     Route: 065

REACTIONS (1)
  - Application site discolouration [Unknown]

NARRATIVE: CASE EVENT DATE: 20191101
